FAERS Safety Report 10152148 (Version 1)
Quarter: 2014Q2

REPORT INFORMATION
  Report Type: Spontaneous
  Country: GB (occurrence: None)
  Receive Date: 20140501
  Receipt Date: 20140501
  Transmission Date: 20141212
  Serious: Yes (Hospitalization)
  Sender: FDA-Public Use
  Company Number: GB-2014-1419

PATIENT
  Age: 35 Year
  Sex: Female
  Weight: 65 kg

DRUGS (7)
  1. VINORELBINE [Suspect]
     Indication: PRODUCT USED FOR UNKNOWN INDICATION
     Route: 048
     Dates: start: 20140307, end: 20140309
  2. CAPECITABINE [Suspect]
     Indication: PRODUCT USED FOR UNKNOWN INDICATION
     Route: 048
     Dates: start: 20140307, end: 20140309
  3. DEXAMETHASONE [Concomitant]
  4. DOCETAXEL (DOCETAXEL) [Concomitant]
  5. ZOLEDRONIC ACID (ZOLEDRONIC ACID) [Concomitant]
  6. PROCYCLIDINE [Concomitant]
  7. METOCLOPRAMIDE [Concomitant]

REACTIONS (4)
  - Oromandibular dystonia [None]
  - Speech disorder [None]
  - Trismus [None]
  - Facial pain [None]
